FAERS Safety Report 14549403 (Version 1)
Quarter: 2018Q1

REPORT INFORMATION
  Report Type: Other
  Country: FR (occurrence: FR)
  Receive Date: 20180219
  Receipt Date: 20180219
  Transmission Date: 20180509
  Serious: Yes (Life-Threatening, Other)
  Sender: FDA-Public Use
  Company Number: FR-GLENMARK PHARMACEUTICALS-2018GMK031992

PATIENT

DRUGS (9)
  1. CYTARABINE. [Interacting]
     Active Substance: CYTARABINE
     Indication: ACUTE LYMPHOCYTIC LEUKAEMIA
     Dosage: 30 MG, QD, 1X/DAY
     Route: 037
     Dates: start: 20171214
  2. DEXAMETHASONE. [Interacting]
     Active Substance: DEXAMETHASONE
     Dosage: 15.5 MG, QD, 1X/DAY
     Route: 048
     Dates: start: 20171211, end: 20171217
  3. DAUNORUBICIN [Interacting]
     Active Substance: DAUNORUBICIN
     Indication: ACUTE LYMPHOCYTIC LEUKAEMIA
     Dosage: 46.5 MG, UNK
     Route: 042
     Dates: start: 20171218, end: 20171226
  4. PEGASPARGASE [Interacting]
     Active Substance: PEGASPARGASE
     Indication: ACUTE LYMPHOCYTIC LEUKAEMIA
     Dosage: 1940 IU, QD, 1X/DAY
     Route: 042
     Dates: start: 20171214
  5. DEXAMETHASONE. [Interacting]
     Active Substance: DEXAMETHASONE
     Indication: ACUTE LYMPHOCYTIC LEUKAEMIA
     Dosage: 15.5 MG, UNK
     Route: 048
     Dates: start: 20171226, end: 20180101
  6. HYDROCORTISONE BUTYRATE. [Suspect]
     Active Substance: HYDROCORTISONE BUTYRATE
     Indication: PRODUCT USED FOR UNKNOWN INDICATION
     Dosage: 15 MG, QD, 1X/DAY
     Route: 037
     Dates: start: 20171214
  7. DAUNORUBICIN [Interacting]
     Active Substance: DAUNORUBICIN
     Dosage: 45.3 MG, QD, 1X/DAY
     Route: 042
     Dates: start: 20171211
  8. METHOTREXATE. [Interacting]
     Active Substance: METHOTREXATE
     Indication: ACUTE LYMPHOCYTIC LEUKAEMIA
     Dosage: 15 MG, QD, 1X/DAY
     Route: 037
     Dates: start: 20171214
  9. VINCRISTINE [Interacting]
     Active Substance: VINCRISTINE
     Indication: ACUTE LYMPHOCYTIC LEUKAEMIA
     Dosage: 2 MG, UNK
     Route: 042
     Dates: start: 20171211, end: 20171226

REACTIONS (2)
  - Cerebrovascular accident [Recovering/Resolving]
  - Potentiating drug interaction [Recovering/Resolving]

NARRATIVE: CASE EVENT DATE: 20180122
